FAERS Safety Report 5712455-0 (Version None)
Quarter: 2008Q2

REPORT INFORMATION
  Report Type: 
  Country: None (occurrence: None)
  Receive Date: 20080422
  Receipt Date: 20080416
  Transmission Date: 20081010
  Serious: Yes (Death, Hospitalization)
  Sender: FDA-Public Use
  Company Number: US-BRISTOL-MYERS SQUIBB COMPANY-14097208

PATIENT
  Age: 53 Year
  Sex: Female
  Weight: 64 kg

DRUGS (13)
  1. IXEMPRA KIT [Suspect]
     Indication: BREAST CANCER
     Route: 042
     Dates: start: 20080104
  2. NARCOTIC ANALGESICS [Concomitant]
  3. ANTIDEPRESSANT [Concomitant]
  4. ZANTAC [Concomitant]
     Indication: PREMEDICATION
     Route: 042
     Dates: start: 20080104
  5. BENADRYL [Concomitant]
     Route: 042
     Dates: start: 20080104
  6. DECADRON [Concomitant]
     Indication: PREMEDICATION
     Route: 042
     Dates: start: 20080104
  7. ALOXI [Concomitant]
     Indication: PREMEDICATION
     Route: 042
     Dates: start: 20080104
  8. WELLBUTRIN [Concomitant]
     Route: 048
  9. XANAX [Concomitant]
  10. ASCORBIC ACID [Concomitant]
     Route: 048
  11. CELEXA [Concomitant]
     Route: 048
  12. CALCIUM + VITAMIN D [Concomitant]
     Route: 048
  13. GABAPENTIN [Concomitant]
     Route: 048

REACTIONS (12)
  - AGITATION [None]
  - CARDIO-RESPIRATORY ARREST [None]
  - CEREBRAL HAEMORRHAGE [None]
  - CEREBROVASCULAR ACCIDENT [None]
  - CONFUSIONAL STATE [None]
  - DEHYDRATION [None]
  - FAILURE TO THRIVE [None]
  - MALIGNANT NEOPLASM PROGRESSION [None]
  - METASTASES TO CENTRAL NERVOUS SYSTEM [None]
  - PUPILS UNEQUAL [None]
  - RENAL FAILURE [None]
  - SOMNOLENCE [None]
